FAERS Safety Report 6203278-7 (Version None)
Quarter: 2009Q2

REPORT INFORMATION
  Report Type: 
  Country: None (occurrence: None)
  Receive Date: 20090522
  Receipt Date: 20090522
  Transmission Date: 20091009
  Serious: Yes (Hospitalization)
  Sender: FDA-Public Use
  Company Number: None

PATIENT
  Sex: Female
  Weight: 64 kg

DRUGS (2)
  1. TAXOL [Suspect]
     Dosage: 308 MG
     Dates: end: 20090507
  2. CARBOPLATIN [Suspect]
     Dosage: 717 MG
     Dates: end: 20090507

REACTIONS (12)
  - ABDOMINAL ABSCESS [None]
  - BACK PAIN [None]
  - BACTEROIDES INFECTION [None]
  - BLOOD CULTURE POSITIVE [None]
  - CONSTIPATION [None]
  - DRUG HYPERSENSITIVITY [None]
  - ENTEROCOCCAL INFECTION [None]
  - ERYTHEMA [None]
  - LABORATORY TEST INTERFERENCE [None]
  - NAUSEA [None]
  - PAIN [None]
  - STAPHYLOCOCCAL INFECTION [None]
